FAERS Safety Report 23481077 (Version 1)
Quarter: 2024Q1

REPORT INFORMATION
  Report Type: Spontaneous
  Country: US (occurrence: None)
  Receive Date: 20240202
  Receipt Date: 20240202
  Transmission Date: 20240409
  Serious: Yes (Other)
  Sender: FDA-Public Use
  Company Number: None

PATIENT
  Age: 55 Year
  Sex: Female

DRUGS (17)
  1. AMBRISENTAN [Suspect]
     Active Substance: AMBRISENTAN
     Indication: Pulmonary arterial hypertension
     Dosage: FREQUENCY : DAILY;?
     Route: 048
     Dates: start: 20191216
  2. TADALAFIL [Concomitant]
     Active Substance: TADALAFIL
  3. GABAPENTIN [Concomitant]
  4. BUPROPION [Concomitant]
  5. TRAZODONE [Concomitant]
     Active Substance: TRAZODONE HYDROCHLORIDE
  6. BUSPIRONE [Concomitant]
  7. CETIRIZINE [Concomitant]
  8. SENNA [Concomitant]
     Active Substance: SENNA LEAF\SENNOSIDES\SENNOSIDES A AND B
  9. IBUPROFEN [Concomitant]
  10. FLONASE [Concomitant]
     Active Substance: FLUTICASONE PROPIONATE
  11. TORSEMIDE [Concomitant]
  12. ALBUTEROL SULFATE [Concomitant]
     Active Substance: ALBUTEROL SULFATE
  13. POTASSIUM CHLORIDE [Concomitant]
  14. EPIPEN [Concomitant]
  15. alvesco HFA [Concomitant]
  16. topiremate [Concomitant]
  17. MIRALAX [Concomitant]
     Active Substance: POLYETHYLENE GLYCOL 3350

REACTIONS (3)
  - Bronchial hyperreactivity [None]
  - Leukopenia [None]
  - Chest pain [None]

NARRATIVE: CASE EVENT DATE: 20240101
